FAERS Safety Report 24466120 (Version 1)
Quarter: 2024Q4

REPORT INFORMATION
  Report Type: Report from Study
  Country: US (occurrence: US)
  Receive Date: 20241018
  Receipt Date: 20241018
  Transmission Date: 20250115
  Serious: No
  Sender: ROCHE
  Company Number: US-ROCHE-3534046

PATIENT
  Age: 60 Year
  Sex: Female
  Weight: 77.11 kg

DRUGS (7)
  1. XOLAIR [Suspect]
     Active Substance: OMALIZUMAB
     Indication: Urticaria
     Dosage: UNKNOWN
     Route: 058
     Dates: start: 2021
  2. XOLAIR [Suspect]
     Active Substance: OMALIZUMAB
     Dosage: NO
     Route: 058
     Dates: start: 202002, end: 2021
  3. METFORMIN HYDROCHLORIDE [Concomitant]
     Active Substance: METFORMIN HYDROCHLORIDE
     Indication: Type 2 diabetes mellitus
     Route: 048
     Dates: start: 202403
  4. METFORMIN [Concomitant]
     Active Substance: METFORMIN HYDROCHLORIDE
     Indication: Type 2 diabetes mellitus
     Dates: start: 2020, end: 202403
  5. PRAVASTATIN [Concomitant]
     Active Substance: PRAVASTATIN
     Indication: Blood cholesterol
     Route: 048
     Dates: start: 2020
  6. TOPIRAMATE [Concomitant]
     Active Substance: TOPIRAMATE
     Indication: Migraine
     Route: 048
     Dates: start: 2020
  7. SYMBICORT [Concomitant]
     Active Substance: BUDESONIDE\FORMOTEROL FUMARATE DIHYDRATE
     Indication: Asthma
     Route: 055

REACTIONS (8)
  - Respiratory rate increased [Recovered/Resolved]
  - Tachypnoea [Recovered/Resolved]
  - Nervousness [Recovered/Resolved]
  - Emotional distress [Recovered/Resolved]
  - Panic reaction [Recovered/Resolved]
  - Palpitations [Recovered/Resolved]
  - Paranoia [Recovered/Resolved]
  - Discomfort [Unknown]

NARRATIVE: CASE EVENT DATE: 20240325
